FAERS Safety Report 7936053-3 (Version None)
Quarter: 2011Q4

REPORT INFORMATION
  Report Type: 
  Country: None (occurrence: None)
  Receive Date: 20111121
  Receipt Date: 20111103
  Transmission Date: 20120403
  Serious: Yes (Other)
  Sender: FDA-Public Use
  Company Number: 2011MA016167

PATIENT
  Age: 57 Year
  Sex: Male

DRUGS (2)
  1. IBUPROFEN [Suspect]
     Indication: ANKYLOSING SPONDYLITIS
     Dates: end: 20050101
  2. MESLAZINE [Concomitant]

REACTIONS (9)
  - BIOPSY KIDNEY ABNORMAL [None]
  - NORMOCHROMIC NORMOCYTIC ANAEMIA [None]
  - CONDITION AGGRAVATED [None]
  - TUBULOINTERSTITIAL NEPHRITIS [None]
  - GLOMERULOSCLEROSIS [None]
  - KIDNEY SMALL [None]
  - SPONDYLITIS [None]
  - CROHN'S DISEASE [None]
  - RENAL IMPAIRMENT [None]
